FAERS Safety Report 8015393-6 (Version None)
Quarter: 2011Q4

REPORT INFORMATION
  Report Type: 
  Country: None (occurrence: None)
  Receive Date: 20111230
  Receipt Date: 20111220
  Transmission Date: 20120403
  Serious: Yes (Hospitalization, Other)
  Sender: FDA-Public Use
  Company Number: DE-ASTELLAS-2011US006991

PATIENT
  Age: 61 Year
  Sex: Female
  Weight: 64 kg

DRUGS (10)
  1. GEMCITABINE [Suspect]
     Indication: PANCREATIC CARCINOMA
     Dosage: 1000 MG/M2; 28 DAY CYCLE (1816 MG, D1, D8 AND D15)
     Route: 065
  2. GEMCITABINE [Suspect]
     Dosage: 1816 IU, CYCLIC, DAYS 1,8 + 15
     Route: 065
     Dates: end: 20110906
  3. PREDNISOLONE [Concomitant]
     Indication: RHEUMATOID ARTHRITIS
     Dosage: 5 MG, UNKNOWN/D
     Route: 065
     Dates: start: 20110609
  4. HYDROXYCHLOROQUINE SULFATE [Concomitant]
     Indication: RHEUMATOID ARTHRITIS
     Dosage: UNK
     Route: 065
  5. CREON [Concomitant]
     Indication: DYSPEPSIA
     Dosage: UNK
     Route: 065
     Dates: start: 20110609
  6. DIPYRONE INJ [Concomitant]
     Indication: PAIN
     Dosage: 160 DROPS, UID/QD
     Route: 065
     Dates: start: 20110609
  7. ERLOTINIB HYDROCHLORIDE [Suspect]
     Indication: PANCREATIC CARCINOMA
     Dosage: 100 MG, TID
     Route: 048
     Dates: end: 20110909
  8. NALOXONE [Concomitant]
     Indication: PRODUCT USED FOR UNKNOWN INDICATION
     Dosage: 40 MG, UNKNOWN/D
     Route: 065
     Dates: start: 20110609
  9. PANTOZAL [Concomitant]
     Indication: PROPHYLAXIS AGAINST GASTROINTESTINAL ULCER
     Dosage: 40 MG, UNKNOWN/D
     Route: 065
     Dates: start: 20110609
  10. NOVALGINE [Suspect]
     Indication: PRODUCT USED FOR UNKNOWN INDICATION
     Dosage: 160 UNK, DROPS/DAY
     Route: 065
     Dates: start: 20110609

REACTIONS (21)
  - GLOMERULONEPHROPATHY [None]
  - RENAL FAILURE ACUTE [None]
  - PLATELET COUNT DECREASED [None]
  - BLOOD URIC ACID INCREASED [None]
  - ENTERITIS [None]
  - ABDOMINAL ABSCESS [None]
  - ASCITES [None]
  - ELECTROCARDIOGRAM QT PROLONGED [None]
  - ASPARTATE AMINOTRANSFERASE INCREASED [None]
  - THROMBOTIC MICROANGIOPATHY [None]
  - OVERDOSE [None]
  - PLEURAL EFFUSION [None]
  - GASTRIC ULCER [None]
  - C-REACTIVE PROTEIN INCREASED [None]
  - GLOMERULONEPHRITIS [None]
  - VASCULITIS [None]
  - CHOLANGITIS [None]
  - INTUSSUSCEPTION [None]
  - GASTRIC PERFORATION [None]
  - HAEMODIALYSIS [None]
  - BLOOD CALCIUM DECREASED [None]
